FAERS Safety Report 7737010-2 (Version None)
Quarter: 2011Q3

REPORT INFORMATION
  Report Type: 
  Country: None (occurrence: None)
  Receive Date: 20110908
  Receipt Date: 20110825
  Transmission Date: 20111222
  Serious: Yes (Hospitalization)
  Sender: FDA-Public Use
  Company Number: US-ELI_LILLY_AND_COMPANY-US200911006550

PATIENT
  Sex: Female

DRUGS (14)
  1. SEROQUEL [Concomitant]
     Dosage: 25 MG, QD
  2. EFFEXOR [Concomitant]
     Dosage: 75 MG, EACH MORNING
  3. FORTEO [Suspect]
     Dosage: 20 UG, DAILY (1/D)
  4. MYSOLINE [Concomitant]
     Dosage: 250 MG, QD
  5. DITROPAN [Concomitant]
     Dosage: 10 MG, EACH MORNING
  6. FORTEO [Suspect]
     Dosage: 20 UG, QD
  7. CALCIUM CARBONATE [Concomitant]
     Dosage: 1200 MG, BID
  8. FORTEO [Suspect]
     Indication: OSTEOPOROSIS
     Dosage: 20 UG, DAILY (1/D)
     Dates: start: 20090901
  9. NORVASC [Concomitant]
     Indication: BLOOD PRESSURE
     Dosage: 5 MG, EACH MORNING
  10. ZYRTEC-D 12 HOUR [Concomitant]
     Dosage: UNK, PRN
  11. ASPIRIN [Concomitant]
     Dosage: 81 MG, EACH MORNING
  12. FORTEO [Suspect]
     Dosage: 20 UG, DAILY (1/D)
  13. FORTEO [Suspect]
     Dosage: 20 UG, QD
  14. ANALGESICS [Concomitant]

REACTIONS (7)
  - CHONDROPATHY [None]
  - JOINT CREPITATION [None]
  - GAIT DISTURBANCE [None]
  - PROCEDURAL PAIN [None]
  - INJECTION SITE ERYTHEMA [None]
  - MEMORY IMPAIRMENT [None]
  - ARTHRALGIA [None]
